FAERS Safety Report 10455189 (Version 2)
Quarter: 2014Q4

REPORT INFORMATION
  Report Type: Spontaneous
  Country: NO (occurrence: NO)
  Receive Date: 20140916
  Receipt Date: 20141126
  Transmission Date: 20150528
  Serious: Yes (Other)
  Sender: FDA-Public Use
  Company Number: NO-ROCHE-1462073

PATIENT
  Age: 59 Year
  Sex: Female

DRUGS (14)
  1. LEDERSPAN [Concomitant]
     Route: 014
  2. PARACET [Concomitant]
     Active Substance: ACETAMINOPHEN
     Indication: RHEUMATOID ARTHRITIS
     Dosage: PROPHYLAXIS AGAINST MABTHERA INFUSION REACTIONS.
     Route: 065
     Dates: start: 20140714, end: 20140714
  3. CALCIGRAN FORTE [Concomitant]
     Dosage: 800/1000 X 1
     Route: 065
  4. NEXIUM [Concomitant]
     Active Substance: ESOMEPRAZOLE MAGNESIUM
     Route: 065
  5. CETIRIZINE [Concomitant]
     Active Substance: CETIRIZINE HYDROCHLORIDE
     Indication: PROPHYLAXIS
     Dosage: PROPHYLAXIS AGAINST MABTHERA INFUSION REACTIONS.
     Route: 065
     Dates: start: 20140714, end: 20140714
  6. PARACET [Concomitant]
     Active Substance: ACETAMINOPHEN
     Dosage: SHE STARTED TO USE PARACET (1 G X 2) 2-3 DAYS AFTER ADM. OF MABTHERA.
     Route: 065
     Dates: start: 20140716, end: 20140725
  7. SOLU-MEDROL [Concomitant]
     Active Substance: METHYLPREDNISOLONE SODIUM SUCCINATE
     Indication: PROPHYLAXIS
     Dosage: PROPHYLAXIS AGAINST MABTHERA INFUSION REACTIONS.
     Route: 042
     Dates: start: 20140714, end: 20140714
  8. PREDNISOLON [Concomitant]
     Active Substance: PREDNISOLONE
     Indication: RHEUMATOID ARTHRITIS
     Dosage: 7,5 MG MORNING
     Route: 065
  9. MABTHERA [Suspect]
     Active Substance: RITUXIMAB
     Indication: RHEUMATOID ARTHRITIS
     Dosage: ADMINISTREDACCORDING TO PROCEDURE FOR RAPID INFUSION WITHOUT COMPLICATIONS
     Route: 065
     Dates: start: 20140714, end: 2014
  10. XYLOCAINE [Concomitant]
     Active Substance: LIDOCAINE HYDROCHLORIDE
     Route: 014
  11. IBUX [Concomitant]
     Active Substance: IBUPROFEN
     Indication: RHEUMATOID ARTHRITIS
     Dosage: IT WAS UNCLEAR WHETHER SHE USED IBUX AND VIMOVO SEPARATELY OR CONCOMITANT. NEW INFORM : NOT CONCOM.
     Route: 065
     Dates: start: 20140716, end: 20140725
  12. VIMOVO [Concomitant]
     Active Substance: ESOMEPRAZOLE MAGNESIUM\NAPROXEN
     Indication: RHEUMATOID ARTHRITIS
     Dosage: 500/20 MG
     Route: 065
     Dates: end: 20140714
  13. SALAZOPYRIN [Concomitant]
     Active Substance: SULFASALAZINE
     Indication: RHEUMATOID ARTHRITIS
     Dosage: 500 MG, 2 X 2?SALAZOPYRIN WAS TEMPORARILY WITHDRAWN UNTIL NORMALIZATION OF LIVER ENZYMES.
     Route: 065
     Dates: end: 20140725
  14. SIMVASTATIN. [Concomitant]
     Active Substance: SIMVASTATIN
     Dosage: TEMPORARELY WITHDRAWN DUE TO ELEVATED TRANAMINASES
     Route: 065
     Dates: end: 20140725

REACTIONS (1)
  - Transaminases increased [Recovered/Resolved]

NARRATIVE: CASE EVENT DATE: 20140724
